FAERS Safety Report 17109388 (Version 1)
Quarter: 2019Q4

REPORT INFORMATION
  Report Type: Spontaneous
  Country: US (occurrence: US)
  Receive Date: 20191107
  Receipt Date: 20191107
  Transmission Date: 20200122
  Serious: Yes (Other)
  Sender: FDA-Public Use
  Company Number: None

PATIENT
  Age: 66 Year
  Sex: Female
  Weight: 100.24 kg

DRUGS (13)
  1. QUETIAPINE FUMARATE. [Concomitant]
     Active Substance: QUETIAPINE FUMARATE
  2. GAMUNEX [Suspect]
     Active Substance: HUMAN IMMUNOGLOBULIN G
     Indication: IMMUNODEFICIENCY COMMON VARIABLE
     Route: 041
     Dates: start: 20190624, end: 20190624
  3. ROSUVASTATIN. [Concomitant]
     Active Substance: ROSUVASTATIN
  4. BIOTIN [Concomitant]
     Active Substance: BIOTIN
  5. VENLAFAXINE HCL [Concomitant]
     Active Substance: VENLAFAXINE HYDROCHLORIDE
  6. GAMUNEX-C [Suspect]
     Active Substance: HUMAN IMMUNOGLOBULIN G
     Route: 041
  7. GAMUNEX [Suspect]
     Active Substance: HUMAN IMMUNOGLOBULIN G
     Indication: IMMUNODEFICIENCY COMMON VARIABLE
     Route: 041
     Dates: start: 20190624, end: 20190624
  8. NEXIUM [Concomitant]
     Active Substance: ESOMEPRAZOLE MAGNESIUM
  9. TRIAMCINOLONE [Concomitant]
     Active Substance: TRIAMCINOLONE
  10. ALPRAZOLAM. [Concomitant]
     Active Substance: ALPRAZOLAM
  11. PIROXICAM. [Concomitant]
     Active Substance: PIROXICAM
  12. ASPIRIN. [Concomitant]
     Active Substance: ASPIRIN
  13. LINZESS [Concomitant]
     Active Substance: LINACLOTIDE

REACTIONS (7)
  - Rash erythematous [None]
  - Pruritus [None]
  - Rash papular [None]
  - Headache [None]
  - Influenza like illness [None]
  - Nausea [None]
  - Rash pruritic [None]

NARRATIVE: CASE EVENT DATE: 20190624
